FAERS Safety Report 5883521-4 (Version None)
Quarter: 2008Q3

REPORT INFORMATION
  Report Type: 
  Country: None (occurrence: None)
  Receive Date: 20080915
  Receipt Date: 20080904
  Transmission Date: 20090109
  Serious: Yes (Death, Life-Threatening, Hospitalization, Other)
  Sender: FDA-Public Use
  Company Number: GB-JNJFOC-20080800963

PATIENT
  Sex: Female
  Weight: 54 kg

DRUGS (16)
  1. REMICADE [Suspect]
     Indication: RHEUMATOID ARTHRITIS
     Route: 042
  2. ADALAT [Concomitant]
  3. AQUEOUS CREAM [Concomitant]
  4. ARTIFICIAL TEARS [Concomitant]
  5. ACETAMINOPHEN W/ PROPOXYPHENE HCL [Concomitant]
  6. DIDRONEL [Concomitant]
  7. FOLIC ACID [Concomitant]
  8. INDOCIN [Concomitant]
  9. ISPAGHULE HUSK [Concomitant]
  10. METHOTREXATE [Concomitant]
  11. PREDNISOLONE [Concomitant]
  12. QUININE SULPHATE [Concomitant]
  13. RABEPRAZOLE SODIUM [Concomitant]
  14. SALIVIX [Concomitant]
  15. TEMAZEPAM [Concomitant]
  16. TENORETIC 100 [Concomitant]

REACTIONS (6)
  - ARTERIOSCLEROSIS CORONARY ARTERY [None]
  - BRONCHOPNEUMONIA [None]
  - FALL [None]
  - FEMORAL NECK FRACTURE [None]
  - HUMERUS FRACTURE [None]
  - RIB FRACTURE [None]
